FAERS Safety Report 8339014-8 (Version None)
Quarter: 2012Q2

REPORT INFORMATION
  Report Type: 
  Country: None (occurrence: None)
  Receive Date: 20120507
  Receipt Date: 20120425
  Transmission Date: 20120825
  Serious: Yes (Hospitalization, Other)
  Sender: FDA-Public Use
  Company Number: US-PAR PHARMACEUTICAL, INC-2012SCPR004345

PATIENT

DRUGS (2)
  1. METRONIDAZOLE [Suspect]
     Indication: CLOSTRIDIUM DIFFICILE COLITIS
     Dosage: UNK, UNKNOWN
     Route: 065
  2. PROCHLORPERAZINE [Suspect]
     Indication: NAUSEA
     Dosage: UNK, UNKNOWN
     Route: 042

REACTIONS (3)
  - POLYNEUROPATHY [None]
  - DYSKINESIA [None]
  - TOXIC ENCEPHALOPATHY [None]
